FAERS Safety Report 7660144-8 (Version None)
Quarter: 2011Q3

REPORT INFORMATION
  Report Type: 
  Country: None (occurrence: None)
  Receive Date: 20110805
  Receipt Date: 20110726
  Transmission Date: 20111222
  Serious: Yes (Hospitalization)
  Sender: FDA-Public Use
  Company Number: PHHY2011JP65819

PATIENT
  Age: 56 Year
  Sex: Male

DRUGS (3)
  1. VEGETAMIN A [Suspect]
     Dosage: UNK UKN, UNK
     Route: 048
  2. TEGRETOL [Suspect]
     Indication: SCHIZOPHRENIA
     Dosage: 300 MG, DAILY
     Route: 048
  3. LEVOTOMIN [Suspect]
     Dosage: 150 MG, UNK
     Route: 048

REACTIONS (1)
  - LUNG DISORDER [None]
